FAERS Safety Report 5993191-2 (Version None)
Quarter: 2008Q4

REPORT INFORMATION
  Report Type: 
  Country: None (occurrence: None)
  Receive Date: 20081212
  Receipt Date: 20080605
  Transmission Date: 20090506
  Serious: No
  Sender: FDA-Public Use
  Company Number: US-AMGEN-KDL279692

PATIENT
  Sex: Female

DRUGS (1)
  1. ENBREL [Suspect]
     Indication: RHEUMATOID ARTHRITIS
     Route: 058
     Dates: start: 19990801

REACTIONS (9)
  - ARTHRALGIA [None]
  - DIARRHOEA [None]
  - FATIGUE [None]
  - INFLUENZA [None]
  - JOINT STIFFNESS [None]
  - JOINT SWELLING [None]
  - NAUSEA [None]
  - PAIN [None]
  - VOMITING [None]
